FAERS Safety Report 4917754-8 (Version None)
Quarter: 2006Q1

REPORT INFORMATION
  Report Type: 
  Country: None (occurrence: None)
  Receive Date: 20060215
  Receipt Date: 20060202
  Transmission Date: 20060701
  Serious: Yes (Other)
  Sender: FDA-Public Use
  Company Number: 2006017163

PATIENT
  Sex: Male

DRUGS (2)
  1. VIAGRA [Suspect]
     Indication: ILL-DEFINED DISORDER
  2. LASIX [Suspect]
     Indication: ILL-DEFINED DISORDER
     Dosage: 40 MG, INTRAVENOUS
     Route: 042

REACTIONS (4)
  - ACUTE MYOCARDIAL INFARCTION [None]
  - CARDIAC DISORDER [None]
  - HYPOTENSION [None]
  - WRONG DRUG ADMINISTERED [None]
